FAERS Safety Report 10030003 (Version 2)
Quarter: 2014Q1

REPORT INFORMATION
  Report Type: Spontaneous
  Country: None (occurrence: US)
  Receive Date: 20140323
  Receipt Date: 20140323
  Transmission Date: 20141002
  Serious: No
  Sender: FDA-Public Use
  Company Number: US-ALLERGAN-1304641US

PATIENT
  Age: 67 Year
  Sex: Female

DRUGS (3)
  1. LATISSE 0.03% [Suspect]
     Indication: GROWTH OF EYELASHES
     Dosage: 1 GTT, QHS
     Route: 061
     Dates: start: 201301
  2. MEDICATIONS FOR DIABETES NOS [Concomitant]
     Indication: TYPE 2 DIABETES MELLITUS
  3. VISINE                             /00256502/ [Concomitant]
     Indication: DRY EYE
     Dosage: UNK UNK, PRN
     Route: 047

REACTIONS (3)
  - Wrong technique in drug usage process [Unknown]
  - Incorrect dose administered [Unknown]
  - Acne [Recovered/Resolved]
